FAERS Safety Report 4752092-8 (Version None)
Quarter: 2005Q3

REPORT INFORMATION
  Report Type: 
  Country: None (occurrence: None)
  Receive Date: 20050825
  Receipt Date: 20050311
  Transmission Date: 20060218
  Serious: Yes (Hospitalization)
  Sender: FDA-Public Use
  Company Number: IT-SP-2005-00535

PATIENT
  Age: 62 Year
  Sex: Male

DRUGS (1)
  1. IMMUCYST [Suspect]
     Indication: BLADDER CANCER
     Route: 043
     Dates: start: 20050111, end: 20050217

REACTIONS (2)
  - CONJUNCTIVITIS [None]
  - POLYARTHRITIS [None]
